FAERS Safety Report 12707589 (Version 1)
Quarter: 2016Q3

REPORT INFORMATION
  Report Type: Report from Study
  Country: DE (occurrence: FR)
  Receive Date: 20160901
  Receipt Date: 20160901
  Transmission Date: 20161109
  Serious: Yes (Death)
  Sender: FDA-Public Use
  Company Number: DE-ACTELION-A-NJ2016-135860

PATIENT
  Age: 72 Year
  Sex: Female

DRUGS (1)
  1. VENTAVIS [Suspect]
     Active Substance: ILOPROST
     Indication: PULMONARY ARTERIAL HYPERTENSION
     Dosage: 5 MCG, 6/D
     Route: 055
     Dates: start: 20130528

REACTIONS (2)
  - Dyspnoea [Fatal]
  - Product use issue [Unknown]

NARRATIVE: CASE EVENT DATE: 20160624
